FAERS Safety Report 5806462-7 (Version None)
Quarter: 2008Q3

REPORT INFORMATION
  Report Type: 
  Country: None (occurrence: None)
  Receive Date: 20080710
  Receipt Date: 20080701
  Transmission Date: 20090109
  Serious: Yes (Hospitalization)
  Sender: FDA-Public Use
  Company Number: ZA-ELI_LILLY_AND_COMPANY-ZA200806004895

PATIENT
  Age: 12 Year
  Sex: Female
  Weight: 54 kg

DRUGS (4)
  1. STRATTERA [Suspect]
     Indication: ATTENTION DEFICIT/HYPERACTIVITY DISORDER
     Dosage: 18 MG, DAILY (1/D)
     Route: 048
     Dates: start: 20080601, end: 20080603
  2. AZITHROMYCIN [Concomitant]
     Indication: SINUSITIS
     Dosage: UNK, UNKNOWN
     Route: 065
  3. TOPIRAMATE [Concomitant]
     Dosage: UNK, UNKNOWN
     Route: 065
  4. POLYETHYL. GLYC. W/POTAS. CHLOR./SOD. BICARB. [Concomitant]
     Indication: CONSTIPATION
     Dosage: UNK, UNKNOWN
     Route: 065

REACTIONS (2)
  - RENAL FAILURE ACUTE [None]
  - VOMITING [None]
